FAERS Safety Report 5512589-X (Version None)
Quarter: 2007Q4

REPORT INFORMATION
  Report Type: 
  Country: None (occurrence: None)
  Receive Date: 20071107
  Receipt Date: 20071022
  Transmission Date: 20080405
  Serious: Yes (Other)
  Sender: FDA-Public Use
  Company Number: 2007001866

PATIENT
  Age: 55 Year
  Sex: Female

DRUGS (4)
  1. TARCEVA [Suspect]
     Indication: LUNG CANCER METASTATIC
     Dosage: 100 MG, QD, ORAL
     Route: 048
     Dates: start: 20061115
  2. BEVACIZUMAB (INJECTION FOR INFUSION) [Suspect]
     Indication: LUNG CANCER METASTATIC
     Dosage: 5 MG, INTRAVENOUS
     Route: 042
     Dates: start: 20061115, end: 20070815
  3. ZOFRON (ONDANSETRON HYDROCHLORIDE) [Concomitant]
  4. DEXAMETHASONE TAB [Concomitant]

REACTIONS (2)
  - COLITIS ULCERATIVE [None]
  - ILEITIS [None]
